FAERS Safety Report 8054038 (Version 2)
Quarter: 2013Q1

REPORT INFORMATION
  Report Type: Spontaneous
  Country: US (occurrence: US)
  Receive Date: 20110726
  Receipt Date: 20130219
  Transmission Date: 20140127
  Serious: Yes (Hospitalization)
  Sender: FDA-Public Use
  Company Number: US-BAYER-2011-063048

PATIENT
  Age: 28 Year
  Sex: Female
  Weight: 100 kg

DRUGS (6)
  1. YAZ [Suspect]
     Indication: CONTRACEPTION
     Dosage: UNK
     Dates: start: 2006, end: 2010
  2. NSAID^S [Concomitant]
     Dosage: UNK
     Dates: start: 2000, end: 2010
  3. DIURETICS [Concomitant]
     Dosage: UNK
     Dates: start: 2010, end: 2011
  4. WELLBUTRIN [Concomitant]
     Dosage: UNK
     Dates: start: 20101222
  5. HYDROCHLOROTHIAZIDE [Concomitant]
     Indication: FLUID RETENTION
     Dosage: UNK
     Dates: start: 20101222
  6. PRILOSEC [Concomitant]
     Dosage: UNK
     Dates: start: 20101222

REACTIONS (8)
  - Gallbladder injury [None]
  - General physical health deterioration [None]
  - Injury [None]
  - Cholecystitis chronic [None]
  - Emotional distress [None]
  - Pain [None]
  - Anxiety [None]
  - Depression [None]
